FAERS Safety Report 6152759-3 (Version None)
Quarter: 2009Q2

REPORT INFORMATION
  Report Type: 
  Country: None (occurrence: None)
  Receive Date: 20090409
  Receipt Date: 20090326
  Transmission Date: 20091009
  Serious: Yes (Hospitalization)
  Sender: FDA-Public Use
  Company Number: 8044304

PATIENT
  Sex: Female

DRUGS (6)
  1. KEPPRA [Suspect]
     Indication: CONVULSION
     Dosage: 1000 MG 2/D PO
     Route: 048
  2. LEVETIRACETAM [Suspect]
     Dosage: 1000 MG 2/D PO
     Route: 048
  3. LEVOTHYROXINE SODIUM [Concomitant]
  4. CARBIDOPA [Concomitant]
  5. ARICEPT [Concomitant]
  6. LIPITOR [Concomitant]

REACTIONS (5)
  - CHEILITIS [None]
  - DROOLING [None]
  - INCREASED UPPER AIRWAY SECRETION [None]
  - LIP SWELLING [None]
  - RASH [None]
